FAERS Safety Report 7524738-2 (Version None)
Quarter: 2011Q2

REPORT INFORMATION
  Report Type: 
  Country: None (occurrence: None)
  Receive Date: 20110606
  Receipt Date: 20110105
  Transmission Date: 20111010
  Serious: Yes (Other)
  Sender: FDA-Public Use
  Company Number: US-BAYER-201038142NA

PATIENT
  Age: 33 Year
  Sex: Female
  Weight: 77.098 kg

DRUGS (3)
  1. YASMIN [Suspect]
     Dosage: UNK
     Route: 048
     Dates: start: 20020301, end: 20040415
  2. ESTROSTEP [Concomitant]
     Dosage: UNK
     Dates: start: 20011009
  3. ZOLOFT [Concomitant]
     Indication: POSTPARTUM DEPRESSION

REACTIONS (4)
  - EMOTIONAL DISTRESS [None]
  - GALLBLADDER INJURY [None]
  - CHOLELITHIASIS [None]
  - CHOLECYSTITIS CHRONIC [None]
